FAERS Safety Report 16478168 (Version 1)
Quarter: 2019Q2

REPORT INFORMATION
  Report Type: Spontaneous
  Country: US (occurrence: US)
  Receive Date: 20190626
  Receipt Date: 20190626
  Transmission Date: 20190711
  Serious: No
  Sender: FDA-Public Use
  Company Number: US-TEVA-2019-US-1058586

PATIENT
  Age: 54 Year
  Sex: Male
  Weight: 100 kg

DRUGS (18)
  1. ALBUTEROL. [Suspect]
     Active Substance: ALBUTEROL
  2. FLUTICASONE. [Concomitant]
     Active Substance: FLUTICASONE
  3. ATORVASTATIN [Concomitant]
     Active Substance: ATORVASTATIN
  4. VIAGRA [Concomitant]
     Active Substance: SILDENAFIL CITRATE
  5. DEPAKOTE [Concomitant]
     Active Substance: DIVALPROEX SODIUM
  6. BOTULINUM TOXIN A INJECTION [Concomitant]
  7. NAPROXEN. [Concomitant]
     Active Substance: NAPROXEN
  8. SUBOXONE [Concomitant]
     Active Substance: BUPRENORPHINE HYDROCHLORIDE\NALOXONE HYDROCHLORIDE
  9. DULOXETINE. [Concomitant]
     Active Substance: DULOXETINE
  10. ASPIRIN. [Concomitant]
     Active Substance: ASPIRIN
  11. PROVIGIL [Suspect]
     Active Substance: MODAFINIL
     Indication: INSOMNIA
     Dosage: 200 MILLIGRAM DAILY;
     Dates: start: 20190128
  12. ASCORBIC ACID. [Concomitant]
     Active Substance: ASCORBIC ACID
  13. TIZANIDINE. [Concomitant]
     Active Substance: TIZANIDINE
  14. CALCIUM CITRATE [Concomitant]
     Active Substance: CALCIUM CITRATE
  15. VITAMIN D [Concomitant]
     Active Substance: VITAMIN D NOS
  16. LYRICA [Concomitant]
     Active Substance: PREGABALIN
  17. LATUDA [Concomitant]
     Active Substance: LURASIDONE HYDROCHLORIDE
  18. NICOTINE. [Concomitant]
     Active Substance: NICOTINE

REACTIONS (3)
  - Product use in unapproved indication [Unknown]
  - Drug screen positive [Unknown]
  - Product prescribing error [Unknown]

NARRATIVE: CASE EVENT DATE: 20190128
